FAERS Safety Report 9259057 (Version 1)
Quarter: 2013Q2

REPORT INFORMATION
  Report Type: Spontaneous
  Country: US (occurrence: US)
  Receive Date: 20130426
  Receipt Date: 20130426
  Transmission Date: 20140414
  Serious: No
  Sender: FDA-Public Use
  Company Number: US-ASTRAZENECA-2013SE23101

PATIENT
  Age: 71 Year
  Sex: Female
  Weight: 73 kg

DRUGS (9)
  1. METAPROLOL SUCCINATE [Suspect]
     Route: 048
  2. BRILINTA [Suspect]
     Indication: MYOCARDIAL INFARCTION
     Route: 048
     Dates: start: 201303
  3. AMYLODIPINE BESALATE [Concomitant]
  4. BABY ASA [Concomitant]
  5. BENZOPRIL [Concomitant]
  6. GLIPIZIDE [Concomitant]
  7. INSULIN HUMULOG 75/25 [Concomitant]
  8. ISOSORBIDE MONONITRATE [Concomitant]
  9. PREVASTATIN [Concomitant]

REACTIONS (1)
  - Skin discolouration [Unknown]
